FAERS Safety Report 25130265 (Version 1)
Quarter: 2025Q1

REPORT INFORMATION
  Report Type: Report from Study
  Country: US (occurrence: US)
  Receive Date: 20250327
  Receipt Date: 20250327
  Transmission Date: 20250409
  Serious: No
  Sender: ESPERION THERAPEUTICS
  Company Number: US-ESPERIONTHERAPEUTICS-2024USA01417

PATIENT
  Sex: Female
  Weight: 74.83 kg

DRUGS (1)
  1. BEMPEDOIC ACID\EZETIMIBE [Suspect]
     Active Substance: BEMPEDOIC ACID\EZETIMIBE
     Indication: Blood cholesterol increased
     Dosage: 180/10 MG, QD
     Route: 048
     Dates: start: 202408, end: 20240909

REACTIONS (4)
  - Muscle twitching [Unknown]
  - Asthenia [Unknown]
  - Urinary tract disorder [Unknown]
  - Muscle spasms [Unknown]
